FAERS Safety Report 4424768-3 (Version None)
Quarter: 2004Q3

REPORT INFORMATION
  Report Type: 
  Country: None (occurrence: None)
  Receive Date: 20040805
  Receipt Date: 20010830
  Transmission Date: 20050211
  Serious: Yes (Hospitalization)
  Sender: FDA-Public Use
  Company Number: TCI2001A03397

PATIENT
  Age: 53 Year
  Sex: Female

DRUGS (8)
  1. LANSOPRAZOLE [Suspect]
     Indication: GASTRIC ULCER
     Dosage: 60 MG (30 MG, 2 IN 1 D)
     Route: 048
     Dates: start: 20010830, end: 20010830
  2. LANSOPRAZOLE [Suspect]
     Indication: HELICOBACTER INFECTION
     Dosage: 60 MG (30 MG, 2 IN 1 D)
     Route: 048
     Dates: start: 20010830, end: 20010830
  3. AMOXICILLIN TRIHYDRATE [Suspect]
     Indication: HELICOBACTER INFECTION
     Dosage: 1500MG (750 MG 2 IN 1 D)
     Route: 048
     Dates: start: 20010830, end: 20010830
  4. CLARITHROMYCIN [Suspect]
     Indication: HELICOBACTER INFECTION
     Dosage: 400 MG ( 200 MG 2 IN 1 D)
     Route: 048
     Dates: start: 20010830, end: 20010830
  5. BUFFERIN [Concomitant]
  6. ... [Concomitant]
  7. DEPAKENE [Concomitant]
  8. ONE-ALPHA               (ALFACALCIDOL) [Concomitant]

REACTIONS (13)
  - ALANINE AMINOTRANSFERASE INCREASED [None]
  - ASPARTATE AMINOTRANSFERASE INCREASED [None]
  - BLOOD PRESSURE DECREASED [None]
  - CONJUNCTIVAL HYPERAEMIA [None]
  - DRUG INTERACTION [None]
  - FACE OEDEMA [None]
  - HEART RATE INCREASED [None]
  - HEPATIC FUNCTION ABNORMAL [None]
  - MAJOR DEPRESSION [None]
  - PIGMENTATION DISORDER [None]
  - RALES [None]
  - RESPIRATORY RATE INCREASED [None]
  - TOXIC EPIDERMAL NECROLYSIS [None]
